FAERS Safety Report 24608933 (Version 1)
Quarter: 2024Q4

REPORT INFORMATION
  Report Type: Spontaneous
  Country: PT (occurrence: PT)
  Receive Date: 20241112
  Receipt Date: 20241112
  Transmission Date: 20250115
  Serious: Yes (Hospitalization)
  Sender: SANOFI AVENTIS
  Company Number: PT-SA-2024SA327153

PATIENT
  Age: 60 Year
  Sex: Female

DRUGS (1)
  1. DUPILUMAB [Suspect]
     Active Substance: DUPILUMAB
     Indication: Prurigo
     Dosage: UNK

REACTIONS (6)
  - Acarodermatitis [Recovered/Resolved]
  - Dermatosis [Recovered/Resolved]
  - Hyperkeratosis [Recovered/Resolved]
  - Skin plaque [Recovered/Resolved]
  - Infection parasitic [Recovered/Resolved]
  - Off label use [Recovered/Resolved]
